FAERS Safety Report 4425057-3 (Version None)
Quarter: 2004Q3

REPORT INFORMATION
  Report Type: 
  Country: None (occurrence: None)
  Receive Date: 20040810
  Receipt Date: 20040727
  Transmission Date: 20050211
  Serious: Yes (Hospitalization)
  Sender: FDA-Public Use
  Company Number: US-2004-025511

PATIENT
  Age: 57 Year
  Sex: Male
  Weight: 81.2 kg

DRUGS (7)
  1. FINACEA [Suspect]
     Indication: DERMATITIS
     Dosage: SEE IMAGE
     Route: 061
     Dates: start: 20030801, end: 20040402
  2. FINACEA [Suspect]
     Indication: DERMATITIS
     Dosage: SEE IMAGE
     Route: 061
     Dates: start: 20040417, end: 20040511
  3. BEXTRA [Suspect]
     Indication: ARTHRITIS
     Dosage: 20 MG, 1X/DAY, ORAL
     Route: 048
     Dates: start: 20030901, end: 20040412
  4. NORVASC  /DEN/ (AMLODIPINE BESILATE) [Concomitant]
  5. NEXIUM /UNK/ (ESOMEPRAZOLE) [Concomitant]
  6. ZOLOFT [Concomitant]
  7. XALATAN [Concomitant]

REACTIONS (10)
  - ANAEMIA [None]
  - ASTHENIA [None]
  - DEHYDRATION [None]
  - DIARRHOEA [None]
  - HAEMODIALYSIS [None]
  - NAUSEA [None]
  - NEPHROLITHIASIS [None]
  - RENAL FAILURE ACUTE [None]
  - RENAL TUBULAR NECROSIS [None]
  - VOMITING [None]
